FAERS Safety Report 24632975 (Version 1)
Quarter: 2024Q4

REPORT INFORMATION
  Report Type: Spontaneous
  Country: US (occurrence: US)
  Receive Date: 20241118
  Receipt Date: 20241118
  Transmission Date: 20250115
  Serious: No
  Sender: PERRIGO
  Company Number: US-PERRIGO-24US008962

PATIENT
  Age: 19 Year
  Sex: Female
  Weight: 70.295 kg

DRUGS (1)
  1. OPILL [Suspect]
     Active Substance: NORGESTREL
     Indication: Menstrual cycle management
     Dosage: 0.075 MG, QD
     Route: 048
     Dates: start: 20240811, end: 20240922

REACTIONS (3)
  - Pyrexia [Recovered/Resolved]
  - Polymenorrhoea [Recovering/Resolving]
  - Product use in unapproved indication [Unknown]

NARRATIVE: CASE EVENT DATE: 20240811
